FAERS Safety Report 23310129 (Version 4)
Quarter: 2024Q4

REPORT INFORMATION
  Report Type: Report from Study
  Country: US (occurrence: US)
  Receive Date: 20231218
  Receipt Date: 20241111
  Transmission Date: 20250114
  Serious: Yes (Death, Life-Threatening, Hospitalization, Other)
  Sender: BIOGEN
  Company Number: US-BIOGEN-2023BI01240585

PATIENT
  Age: 63 Year
  Sex: Male

DRUGS (26)
  1. VUMERITY [Suspect]
     Active Substance: DIROXIMEL FUMARATE
     Indication: Multiple sclerosis
     Dosage: MAINTENANCE DOSE
     Route: 050
     Dates: start: 20230817
  2. VUMERITY [Suspect]
     Active Substance: DIROXIMEL FUMARATE
     Dosage: MAINTENANCE DOSE
     Route: 050
     Dates: start: 20230829
  3. VUMERITY [Suspect]
     Active Substance: DIROXIMEL FUMARATE
     Route: 050
     Dates: start: 20230817, end: 2024
  4. TYLENOL [Concomitant]
     Active Substance: ACETAMINOPHEN
     Indication: Product used for unknown indication
     Route: 050
  5. NORVASC [Concomitant]
     Active Substance: AMLODIPINE BESYLATE
     Indication: Product used for unknown indication
     Dosage: 1 TABLET BY MOUTH DAILY
     Route: 050
  6. ASPIRIN [Concomitant]
     Active Substance: ASPIRIN
     Indication: Product used for unknown indication
     Route: 050
  7. LIPITOR [Concomitant]
     Active Substance: ATORVASTATIN CALCIUM
     Indication: Product used for unknown indication
     Dosage: 1 TABLET BY MOUTH EVERY NIGHT
     Route: 050
  8. VITAMINS [Concomitant]
     Active Substance: VITAMINS
     Indication: Product used for unknown indication
     Route: 050
  9. LASIX [Concomitant]
     Active Substance: FUROSEMIDE
     Indication: Product used for unknown indication
     Route: 050
  10. GLUCOTROL [Concomitant]
     Active Substance: GLIPIZIDE
     Indication: Product used for unknown indication
     Dosage: TAKE 1 TABLET BY MOUTH TWICE DAILY BEFORE MEALS
     Route: 050
  11. GLUCAGEN [Concomitant]
     Active Substance: GLUCAGON HYDROCHLORIDE
     Indication: Product used for unknown indication
     Dosage: 1 MG/ML INJECTION?ADMINISTER 1ML INTO THE VEIN AS NEEDED
     Route: 050
  12. HUMALOG KWIKPEN [Concomitant]
     Active Substance: INSULIN LISPRO
     Indication: Product used for unknown indication
     Dosage: 100 UNIT/ML INJECTION PEN?INJECT 10 UNITS BEFORE MEALS. INCREASE AS DIRECTED PER SLIDING SCALE. M...
     Route: 050
  13. INSULIN LISPRO [Concomitant]
     Active Substance: INSULIN LISPRO
     Indication: Product used for unknown indication
     Dosage: 100 UNIT/ML INJECTION PEN.?INJECT 10 UNITS 3X DAILY WITH MEALS PER SLIDING SCALE. INCREASE AS DIR...
     Route: 050
  14. IMDUR [Concomitant]
     Active Substance: ISOSORBIDE MONONITRATE
     Indication: Product used for unknown indication
     Dosage: TAKE 1 TABLET BY MOUTH IN THE MORNING.
     Route: 050
  15. SYNTHROID [Concomitant]
     Active Substance: LEVOTHYROXINE SODIUM
     Indication: Product used for unknown indication
     Dosage: TAKE 1 TABLET BY MOUTH EVERY MORNING BEFORE BREAKFAST.
     Route: 050
  16. ZESTRIL [Concomitant]
     Active Substance: LISINOPRIL
     Indication: Product used for unknown indication
     Route: 050
  17. GLUCOPHAGE [Concomitant]
     Active Substance: METFORMIN HYDROCHLORIDE
     Indication: Product used for unknown indication
     Route: 050
  18. TOPROL XL [Concomitant]
     Active Substance: METOPROLOL SUCCINATE
     Indication: Product used for unknown indication
     Route: 050
  19. NITROSTAT [Concomitant]
     Active Substance: NITROGLYCERIN
     Indication: Chest pain
     Dosage: PLACE 1 TABLET UNDER TONGUE EVERY 5 MINUTES AS NEEDED FOR CHEST PAIN.
     Route: 050
  20. PAXIL-CR [Concomitant]
     Indication: Product used for unknown indication
     Route: 050
  21. KLOR-CON [Concomitant]
     Active Substance: POTASSIUM CHLORIDE
     Indication: Product used for unknown indication
     Route: 050
  22. LYRICA [Concomitant]
     Active Substance: PREGABALIN
     Indication: Product used for unknown indication
     Dosage: TAKE 2 CAPSULES BY MOUTH 2 TIMES DAILY. MUST LAST 28 DAYS.
     Route: 050
  23. RANEXA [Concomitant]
     Active Substance: RANOLAZINE
     Indication: Product used for unknown indication
     Route: 050
  24. ZANAFLEX [Concomitant]
     Active Substance: TIZANIDINE HYDROCHLORIDE
     Indication: Product used for unknown indication
     Route: 050
  25. VITAMIN D3 [Concomitant]
     Active Substance: CHOLECALCIFEROL
     Indication: Product used for unknown indication
     Route: 050
  26. PLAVIX [Concomitant]
     Active Substance: CLOPIDOGREL BISULFATE
     Indication: Product used for unknown indication
     Route: 050

REACTIONS (6)
  - Death [Fatal]
  - Acute myocardial infarction [Recovered/Resolved]
  - COVID-19 pneumonia [Recovered/Resolved]
  - Acute kidney injury [Unknown]
  - Chronic kidney disease [Unknown]
  - Fall [Recovered/Resolved]

NARRATIVE: CASE EVENT DATE: 20231102
